FAERS Safety Report 20919989 (Version 1)
Quarter: 2022Q2

REPORT INFORMATION
  Report Type: Spontaneous
  Country: US (occurrence: None)
  Receive Date: 20220604
  Receipt Date: 20220604
  Transmission Date: 20220721
  Serious: Yes (Hospitalization)
  Sender: FDA-Public Use
  Company Number: None

PATIENT
  Age: 57 Year
  Sex: Male
  Weight: 150.8 kg

DRUGS (4)
  1. CISPLATIN [Suspect]
     Active Substance: CISPLATIN
     Dates: end: 20220524
  2. IFOSFAMIDE [Suspect]
     Active Substance: IFOSFAMIDE
     Dates: end: 20220524
  3. TAXOL [Suspect]
     Active Substance: PACLITAXEL
     Dates: end: 20220520
  4. NEULASTA [Suspect]
     Active Substance: PEGFILGRASTIM
     Dates: end: 20220525

REACTIONS (5)
  - Renal failure [None]
  - Sepsis [None]
  - Atypical pneumonia [None]
  - Bacterial infection [None]
  - White blood cell count decreased [None]

NARRATIVE: CASE EVENT DATE: 20220527
